FAERS Safety Report 7906458-5 (Version None)
Quarter: 2011Q4

REPORT INFORMATION
  Report Type: 
  Country: None (occurrence: None)
  Receive Date: 20111110
  Receipt Date: 20111108
  Transmission Date: 20120403
  Serious: Yes (Death)
  Sender: FDA-Public Use
  Company Number: VE-PFIZER INC-2011259337

PATIENT
  Age: 75 Year
  Sex: Male

DRUGS (3)
  1. LIPITOR [Suspect]
     Indication: HYPERCHOLESTEROLAEMIA
     Dosage: 40 MG, 1X/DAY
     Route: 048
     Dates: start: 20080101, end: 20100301
  2. DIOVAN [Concomitant]
     Indication: HYPERTENSION
     Dosage: 80 MG, 1X/DAY
     Route: 048
     Dates: start: 20000101, end: 20100101
  3. CORASPIN [Concomitant]
     Indication: PERIPHERAL VASCULAR DISORDER
     Dosage: 81 MG, 1X/DAY
     Route: 048
     Dates: start: 20000101, end: 20100101

REACTIONS (1)
  - METASTASES TO PROSTATE [None]
